FAERS Safety Report 12090040 (Version 1)
Quarter: 2016Q1

REPORT INFORMATION
  Report Type: Spontaneous
  Country: US (occurrence: US)
  Receive Date: 20160218
  Receipt Date: 20160218
  Transmission Date: 20160526
  Serious: Yes (Other)
  Sender: FDA-Public Use
  Company Number: US-BAYER-2016-025740

PATIENT

DRUGS (1)
  1. BAYER GENUINE ASPIRIN [Suspect]
     Active Substance: ASPIRIN
     Dosage: 1 DF, QD
     Route: 048

REACTIONS (3)
  - Myocardial infarction [None]
  - Product use issue [None]
  - Cardiac operation [None]
